FAERS Safety Report 19003968 (Version 3)
Quarter: 2021Q4

REPORT INFORMATION
  Report Type: Other
  Country: US (occurrence: None)
  Receive Date: 20210313
  Receipt Date: 20211230
  Transmission Date: 20220303
  Serious: Yes (Hospitalization, Other)
  Sender: FDA-Public Use
  Company Number: US-ROCHE-2567317

PATIENT
  Sex: Female

DRUGS (4)
  1. ESBRIET [Suspect]
     Active Substance: PIRFENIDONE
     Indication: Idiopathic pulmonary fibrosis
     Dosage: TABLET 267 MG, 3 TABLET BY MOUTH 3 TIMES A DAY WITH MEAL
     Route: 048
     Dates: start: 2019
  2. ESBRIET [Suspect]
     Active Substance: PIRFENIDONE
     Indication: Interstitial lung disease
     Dosage: TAKE 3 TABLET(S) BY MOUTH 3 TIMES A DAY
     Route: 048
  3. ESBRIET [Suspect]
     Active Substance: PIRFENIDONE
     Indication: Pneumonia
  4. MORPHINE [Suspect]
     Active Substance: MORPHINE
     Indication: Pelvic fracture
     Route: 065

REACTIONS (11)
  - Rib fracture [Unknown]
  - Photosensitivity reaction [Unknown]
  - Rash [Unknown]
  - Fall [Unknown]
  - Neuropathy peripheral [Not Recovered/Not Resolved]
  - Fall [Unknown]
  - Pelvic fracture [Unknown]
  - Illness [Unknown]
  - Poor quality sleep [Unknown]
  - Fatigue [Unknown]
  - Rash [Unknown]

NARRATIVE: CASE EVENT DATE: 20190101
